FAERS Safety Report 4702697-5 (Version None)
Quarter: 2005Q2

REPORT INFORMATION
  Report Type: 
  Country: None (occurrence: None)
  Receive Date: 20050624
  Receipt Date: 20050421
  Transmission Date: 20051028
  Serious: No
  Sender: FDA-Public Use
  Company Number: 2005BI008414

PATIENT
  Sex: Female

DRUGS (3)
  1. AVONEX [Suspect]
     Indication: MULTIPLE SCLEROSIS
     Dosage: 30 UG;QW;IM
     Route: 030
     Dates: start: 19990901
  2. AVONEX [Suspect]
     Indication: MULTIPLE SCLEROSIS
     Dosage: 30 UG;QW;IM
     Route: 030
  3. NATALIZUMAB [Suspect]
     Indication: MULTIPLE SCLEROSIS
     Dosage: 300 MG;QW;IV
     Route: 042
     Dates: start: 20050203, end: 20050203

REACTIONS (6)
  - COGNITIVE DISORDER [None]
  - DIFFICULTY IN WALKING [None]
  - FATIGUE [None]
  - IMPAIRED HEALING [None]
  - MENOPAUSE [None]
  - UPPER LIMB FRACTURE [None]
